FAERS Safety Report 9407204 (Version 1)
Quarter: 2013Q3

REPORT INFORMATION
  Report Type: Spontaneous
  Country: CH (occurrence: CH)
  Receive Date: 20130718
  Receipt Date: 20130718
  Transmission Date: 20140515
  Serious: Yes (Hospitalization)
  Sender: FDA-Public Use
  Company Number: CH-ASTRAZENECA-2013SE52039

PATIENT
  Age: 59 Year
  Sex: Male

DRUGS (12)
  1. SEROQUEL [Suspect]
     Indication: DEPRESSION
     Route: 048
  2. REMERON [Suspect]
     Indication: DEPRESSION
     Route: 048
  3. NORTRILEN [Suspect]
     Indication: DEPRESSION
     Route: 048
     Dates: start: 20130507, end: 20130507
  4. VALTREX [Suspect]
     Indication: HERPES ZOSTER
     Route: 048
     Dates: start: 201304
  5. VALTREX [Suspect]
     Indication: HERPES ZOSTER
     Route: 048
     Dates: start: 20130510
  6. VALTREX [Suspect]
     Indication: HERPES ZOSTER
     Route: 048
     Dates: start: 2013
  7. BELOC [Concomitant]
     Route: 048
  8. IMOVANE [Concomitant]
     Route: 048
  9. EUTHYROX [Concomitant]
     Route: 048
  10. DIFLUCAN [Concomitant]
     Route: 048
  11. MARCOUMAR [Concomitant]
     Route: 048
     Dates: start: 20130510
  12. VELCADE [Concomitant]
     Dosage: 1 DF CYCLIC
     Route: 058

REACTIONS (1)
  - Myoclonus [Recovering/Resolving]
